FAERS Safety Report 7315417-5 (Version None)
Quarter: 2011Q1

REPORT INFORMATION
  Report Type: 
  Country: None (occurrence: None)
  Receive Date: 20110225
  Receipt Date: 20110217
  Transmission Date: 20110831
  Serious: Yes (Hospitalization)
  Sender: FDA-Public Use
  Company Number: A0915179A

PATIENT
  Sex: Female

DRUGS (2)
  1. LAMICTAL [Suspect]
     Dosage: 100MG UNKNOWN
     Dates: start: 20100511
  2. ZOFRAN [Concomitant]
     Dates: start: 20100730

REACTIONS (2)
  - CONVULSION [None]
  - BORDERLINE PERSONALITY DISORDER [None]
